FAERS Safety Report 7669772-7 (Version None)
Quarter: 2011Q3

REPORT INFORMATION
  Report Type: 
  Country: None (occurrence: None)
  Receive Date: 20110808
  Receipt Date: 20110728
  Transmission Date: 20111222
  Serious: Yes (Other)
  Sender: FDA-Public Use
  Company Number: US-JNJFOC-20110602135

PATIENT
  Sex: Female
  Weight: 77.11 kg

DRUGS (1)
  1. REMICADE [Suspect]
     Indication: ANAL FISTULA
     Route: 042
     Dates: end: 20110223

REACTIONS (1)
  - GIARDIASIS [None]
